FAERS Safety Report 9923055 (Version 2)
Quarter: 2014Q1

REPORT INFORMATION
  Report Type: Spontaneous
  Country: US (occurrence: US)
  Receive Date: 20140225
  Receipt Date: 20140321
  Transmission Date: 20141002
  Serious: Yes (Hospitalization)
  Sender: FDA-Public Use
  Company Number: US-GILEAD-2014-0095195

PATIENT
  Age: 74 Year
  Sex: Female

DRUGS (6)
  1. LETAIRIS [Suspect]
     Indication: PULMONARY HYPERTENSION
     Dosage: 5 MG, UNK
     Route: 048
     Dates: start: 20140107, end: 20140125
  2. LETAIRIS [Suspect]
     Indication: SCLERODERMA
     Dosage: 5 MG, UNK
     Route: 048
     Dates: start: 20140219
  3. SPIRONOLACTONE [Concomitant]
     Dosage: 25 MG, UNK
  4. SPIRONOLACTONE [Concomitant]
     Dosage: 50 MG, UNK
  5. ASA [Concomitant]
  6. ADCIRCA [Concomitant]

REACTIONS (1)
  - Fluid retention [Recovered/Resolved]
